FAERS Safety Report 24632695 (Version 1)
Quarter: 2024Q4

REPORT INFORMATION
  Report Type: Spontaneous
  Country: US (occurrence: US)
  Receive Date: 20241118
  Receipt Date: 20241118
  Transmission Date: 20250115
  Serious: No
  Sender: PERRIGO
  Company Number: US-PERRIGO-24US004420

PATIENT
  Sex: Female

DRUGS (2)
  1. OPILL [Suspect]
     Active Substance: NORGESTREL
     Indication: Contraception
     Dosage: 0.075 MG, SINGLE
     Route: 048
     Dates: start: 20240503, end: 20240503
  2. PLAN B [Concomitant]
     Active Substance: LEVONORGESTREL
     Indication: Contraception
     Dosage: UNKNOWN, SINGLE
     Route: 065
     Dates: start: 20240503, end: 20240503

REACTIONS (1)
  - Product administration error [Unknown]

NARRATIVE: CASE EVENT DATE: 20240503
